FAERS Safety Report 9024620 (Version 1)
Quarter: 2013Q1

REPORT INFORMATION
  Report Type: Spontaneous
  Country: US (occurrence: US)
  Receive Date: 20130120
  Receipt Date: 20130120
  Transmission Date: 20140127
  Serious: No
  Sender: FDA-Public Use
  Company Number: US-009507513-1301USA005362

PATIENT
  Sex: Female

DRUGS (4)
  1. PEGINTRON [Suspect]
     Indication: HEPATITIS C
     Dosage: 120 MICROGRAM, QW
     Dates: start: 20121129
  2. VICTRELIS [Suspect]
     Route: 048
  3. RIBAVIRIN [Suspect]
     Route: 048
  4. NEUPOGEN [Concomitant]

REACTIONS (7)
  - Blood count abnormal [Recovering/Resolving]
  - Influenza like illness [Recovering/Resolving]
  - Dry mouth [Recovering/Resolving]
  - Insomnia [Recovering/Resolving]
  - Adverse event [Recovering/Resolving]
  - Product quality issue [Unknown]
  - Incorrect dose administered [Unknown]
